FAERS Safety Report 19106185 (Version 2)
Quarter: 2022Q1

REPORT INFORMATION
  Report Type: Spontaneous
  Country: TG (occurrence: TG)
  Receive Date: 20210408
  Receipt Date: 20220204
  Transmission Date: 20220423
  Serious: Yes (Other)
  Sender: FDA-Public Use
  Company Number: TG-SUN PHARMACEUTICAL INDUSTRIES LTD-2021RR-290261

PATIENT
  Age: 51 Year
  Sex: Female

DRUGS (2)
  1. IMATINIB [Suspect]
     Active Substance: IMATINIB
     Indication: Gastrointestinal stromal tumour
     Dosage: 800 MILLIGRAM, DAILY
     Route: 065
  2. IMATINIB [Suspect]
     Active Substance: IMATINIB
     Dosage: 400 MILLIGRAM, DAILY
     Route: 065

REACTIONS (4)
  - Asthenia [Unknown]
  - Anaemia [Unknown]
  - Haemorrhage [Unknown]
  - Therapeutic product effect incomplete [Unknown]
